FAERS Safety Report 10901490 (Version 1)
Quarter: 2015Q1

REPORT INFORMATION
  Report Type: Spontaneous
  Country: US (occurrence: None)
  Receive Date: 20150303
  Receipt Date: 20150303
  Transmission Date: 20150721
  Serious: No
  Sender: FDA-Public Use
  Company Number: None

PATIENT
  Age: 6 Year
  Sex: Male
  Weight: 24.95 kg

DRUGS (7)
  1. LEUCOVORIN CALCIUM. [Concomitant]
     Active Substance: LEUCOVORIN CALCIUM
  2. ADVANCED NEUROTRANSMITTER SUPPORT SUPPLEMENT [Concomitant]
  3. CHILDREN^S MULTIVITAMIN AND CALCIUM SUPPLEMENT [Concomitant]
  4. BETA GLUCANL [Concomitant]
  5. VYVANSE [Concomitant]
     Active Substance: LISDEXAMFETAMINE DIMESYLATE
  6. VYVANSE [Suspect]
     Active Substance: LISDEXAMFETAMINE DIMESYLATE
     Indication: ATTENTION DEFICIT/HYPERACTIVITY DISORDER
     Dosage: ONE CAPSULE ONCE DAILY TAKEN BY MOUTH
     Route: 048
     Dates: start: 20150226, end: 20150302
  7. AMINOBUTYRIC ACID [Concomitant]

REACTIONS (1)
  - Epistaxis [None]

NARRATIVE: CASE EVENT DATE: 20150302
